FAERS Safety Report 5387908-8 (Version None)
Quarter: 2007Q3

REPORT INFORMATION
  Report Type: 
  Country: None (occurrence: None)
  Receive Date: 20070716
  Receipt Date: 20060829
  Transmission Date: 20080115
  Serious: No
  Sender: FDA-Public Use
  Company Number: A0618217A

PATIENT
  Sex: Female

DRUGS (1)
  1. NICORETTE [Suspect]
     Dates: start: 20060825

REACTIONS (2)
  - COUGH [None]
  - PARAESTHESIA [None]
